FAERS Safety Report 4437341-8 (Version None)
Quarter: 2004Q3

REPORT INFORMATION
  Report Type: 
  Country: None (occurrence: None)
  Receive Date: 20040726
  Receipt Date: 20040326
  Transmission Date: 20050211
  Serious: No
  Sender: FDA-Public Use
  Company Number: USA040363239

PATIENT
  Age: 52 Year
  Sex: Female
  Weight: 55 kg

DRUGS (2)
  1. FORTEO [Suspect]
     Indication: OSTEOPOROSIS
     Dosage: 20 UG/1 DAY
     Dates: start: 20030601
  2. CALCIUM AND VITAMIN D [Concomitant]

REACTIONS (3)
  - BLOOD CALCIUM INCREASED [None]
  - FATIGUE [None]
  - NAUSEA [None]
